FAERS Safety Report 8095739-3 (Version None)
Quarter: 2012Q1

REPORT INFORMATION
  Report Type: 
  Country: None (occurrence: None)
  Receive Date: 20120131
  Receipt Date: 20120118
  Transmission Date: 20120608
  Serious: Yes (Hospitalization, Other)
  Sender: FDA-Public Use
  Company Number: US-ELI_LILLY_AND_COMPANY-US201201005934

PATIENT
  Age: 90 Year
  Sex: Female

DRUGS (13)
  1. PRILOSEC [Concomitant]
  2. ZANTAC [Concomitant]
  3. FUROSEMIDE [Concomitant]
     Dosage: UNK
  4. MULTI-VITAMIN [Concomitant]
  5. FORTEO [Suspect]
     Indication: OSTEOPOROSIS
     Dosage: 20 UG, QD
     Dates: start: 20110701
  6. TOPROL-XL [Concomitant]
  7. HYDRALAZINE HCL [Concomitant]
  8. WATER PILLS [Concomitant]
  9. CALCIUM [Concomitant]
  10. PLAVIX [Concomitant]
  11. GLUCOSAMINE [Concomitant]
  12. LIPITOR [Concomitant]
  13. SYNTHROID [Concomitant]

REACTIONS (2)
  - TRANSIENT ISCHAEMIC ATTACK [None]
  - ASTHENIA [None]
